FAERS Safety Report 15894808 (Version 2)
Quarter: 2019Q2

REPORT INFORMATION
  Report Type: Spontaneous
  Country: US (occurrence: US)
  Receive Date: 20190131
  Receipt Date: 20190417
  Transmission Date: 20190711
  Serious: Yes (Hospitalization)
  Sender: FDA-Public Use
  Company Number: US-SAKK-2019SA023889AA

PATIENT
  Age: 55 Year
  Sex: Female

DRUGS (3)
  1. PRALUENT [Suspect]
     Active Substance: ALIROCUMAB
     Dosage: UNK, OTHER
     Route: 058
     Dates: start: 201901
  2. PRALUENT [Suspect]
     Active Substance: ALIROCUMAB
     Dosage: 75 MG
     Route: 058
     Dates: start: 2019
  3. PRALUENT [Suspect]
     Active Substance: ALIROCUMAB
     Dosage: UNK
     Route: 058
     Dates: start: 20170723

REACTIONS (6)
  - Incorrect dose administered [Unknown]
  - Sinus headache [Unknown]
  - Hypertension [Unknown]
  - Dehydration [Unknown]
  - Influenza like illness [Unknown]
  - Nasopharyngitis [Unknown]

NARRATIVE: CASE EVENT DATE: 2018
